FAERS Safety Report 19052594 (Version 1)
Quarter: 2021Q1

REPORT INFORMATION
  Report Type: Spontaneous
  Country: US (occurrence: US)
  Receive Date: 20210324
  Receipt Date: 20210324
  Transmission Date: 20210420
  Serious: No
  Sender: FDA-Public Use
  Company Number: US-SA-2021SA096189

PATIENT
  Age: 52 Year
  Sex: Male

DRUGS (19)
  1. OZEMPIC [Concomitant]
     Active Substance: SEMAGLUTIDE
  2. CLONIDINE. [Concomitant]
     Active Substance: CLONIDINE
  3. MELOXICAM. [Concomitant]
     Active Substance: MELOXICAM
  4. ALEVE [Concomitant]
     Active Substance: NAPROXEN SODIUM
  5. POTASSIUM [Concomitant]
     Active Substance: POTASSIUM
  6. MAGNESIUM [Concomitant]
     Active Substance: MAGNESIUM
  7. DAILY VITE [COLECALCIFEROL;CYANOCOBALAMIN;ERGOCALCIFEROL;NICOTINAMIDE; [Concomitant]
  8. FISH OIL [Concomitant]
     Active Substance: FISH OIL
  9. GLUCOSAMINE CHONDROITIN [CHONDROITIN SULFATE;GLUCOSAMINE] [Concomitant]
  10. DUPIXENT [Suspect]
     Active Substance: DUPILUMAB
     Indication: CHRONIC RHINOSINUSITIS WITH NASAL POLYPS
     Dosage: 300 MG, QOW
     Route: 058
     Dates: start: 202003
  11. METFORMIN [Concomitant]
     Active Substance: METFORMIN HYDROCHLORIDE
  12. OMEPRAZOLE. [Concomitant]
     Active Substance: OMEPRAZOLE
  13. SINGULAIR [Concomitant]
     Active Substance: MONTELUKAST SODIUM
  14. SPRIX [Concomitant]
     Active Substance: KETOROLAC TROMETHAMINE
  15. VITAMIN D3 [Concomitant]
     Active Substance: CHOLECALCIFEROL
  16. ADVIL [Concomitant]
     Active Substance: IBUPROFEN
  17. METHYLPREDNISOLONE. [Concomitant]
     Active Substance: METHYLPREDNISOLONE
  18. VITAMIN C [Concomitant]
     Active Substance: ASCORBIC ACID
  19. DICLOFENAC SODIUM. [Concomitant]
     Active Substance: DICLOFENAC SODIUM

REACTIONS (1)
  - Nasal congestion [Unknown]
